FAERS Safety Report 24540914 (Version 1)
Quarter: 2024Q4

REPORT INFORMATION
  Report Type: Spontaneous
  Country: US (occurrence: None)
  Receive Date: 20241023
  Receipt Date: 20241023
  Transmission Date: 20250115
  Serious: Yes (Other)
  Sender: Public
  Company Number: None

PATIENT
  Sex: Female

DRUGS (11)
  1. HUMIRA [Suspect]
     Active Substance: ADALIMUMAB
     Indication: Hidradenitis
     Route: 058
     Dates: start: 20240716
  2. ARIPIPRAZOLE TAB 2MG [Concomitant]
  3. ATORVASTATIN TAB 20MG [Concomitant]
  4. FLUCONAZOLE TAB 150MG [Concomitant]
  5. HUMIRA [Concomitant]
     Active Substance: ADALIMUMAB
  6. LISINOPRIL TAB 10MG [Concomitant]
  7. PANTOPRAZOLE TAB 40MG [Concomitant]
  8. SERTRALINE TAB 100MG [Concomitant]
  9. SPIRONOLACT TAB 50MG [Concomitant]
  10. TENIVAC INJ 5-2LF [Concomitant]
  11. VYVANSE CAP 50MG [Concomitant]

REACTIONS (2)
  - Surgery [None]
  - Therapy interrupted [None]
